FAERS Safety Report 23863050 (Version 1)
Quarter: 2024Q2

REPORT INFORMATION
  Report Type: Spontaneous
  Country: CN (occurrence: CN)
  Receive Date: 20240516
  Receipt Date: 20240516
  Transmission Date: 20240716
  Serious: Yes (Other)
  Sender: FDA-Public Use
  Company Number: CN-OTSUKA-2024_013442

PATIENT
  Age: 29 Year
  Sex: Male

DRUGS (4)
  1. ABILIFY [Suspect]
     Active Substance: ARIPIPRAZOLE
     Indication: Schizophrenia
     Dosage: 1 MG
     Route: 065
     Dates: start: 20240430, end: 20240506
  2. ABILIFY [Suspect]
     Active Substance: ARIPIPRAZOLE
     Dosage: UNK (DOSE INCREASED TO 25MG)
     Route: 065
     Dates: start: 20240405, end: 20240419
  3. ABILIFY [Suspect]
     Active Substance: ARIPIPRAZOLE
     Dosage: 20 MG
     Route: 065
  4. ABILIFY [Suspect]
     Active Substance: ARIPIPRAZOLE
     Dosage: 15 MG
     Route: 065
     Dates: start: 20240423, end: 20240425

REACTIONS (5)
  - Schizophrenia [Unknown]
  - Palpitations [Unknown]
  - Restlessness [Recovering/Resolving]
  - Akathisia [Unknown]
  - Underdose [Unknown]

NARRATIVE: CASE EVENT DATE: 20240401
